FAERS Safety Report 8178308-6 (Version None)
Quarter: 2012Q1

REPORT INFORMATION
  Report Type: 
  Country: None (occurrence: None)
  Receive Date: 20120301
  Receipt Date: 20120229
  Transmission Date: 20120608
  Serious: Yes (Other)
  Sender: FDA-Public Use
  Company Number: US-PFIZER INC-2012054408

PATIENT
  Sex: Female
  Weight: 104 kg

DRUGS (8)
  1. CLARITIN [Concomitant]
     Dosage: UNK
  2. LIPITOR [Suspect]
     Indication: BLOOD CHOLESTEROL INCREASED
     Dosage: 20 MG, 1X/DAY
     Route: 048
     Dates: end: 20120222
  3. MULTI-VITAMINS [Concomitant]
     Dosage: UNK
  4. IBUPROFEN [Concomitant]
     Dosage: 400 MG, 3X/DAY
  5. ACETYLSALICYLIC ACID [Concomitant]
     Dosage: UNK
  6. ACCUPRIL [Concomitant]
     Indication: HYPERTENSION
     Dosage: 20 MG, UNK
  7. GUAIFENESIN [Concomitant]
     Dosage: UNK
  8. SODIUM PHOSPHATES [Concomitant]
     Dosage: UNK

REACTIONS (3)
  - ELECTROCARDIOGRAM ABNORMAL [None]
  - STRESS [None]
  - CHEST PAIN [None]
